FAERS Safety Report 4554977-4 (Version None)
Quarter: 2004Q4

REPORT INFORMATION
  Report Type: 
  Country: None (occurrence: None)
  Receive Date: 20041222
  Receipt Date: 20040924
  Transmission Date: 20050328
  Serious: Yes (Hospitalization)
  Sender: FDA-Public Use
  Company Number: 208636

PATIENT
  Age: 61 Year
  Sex: Female
  Weight: 50.8 kg

DRUGS (4)
  1. AVASTIN [Suspect]
     Indication: COLORECTAL CANCER METASTATIC
     Dosage: 288 MG, INTRAVENOUS
     Route: 042
     Dates: start: 20040804, end: 20040804
  2. FLUOROURACIL [Concomitant]
  3. COUMADIN [Concomitant]
  4. OXALIPLATIN (OXALIPLATIN) [Concomitant]

REACTIONS (1)
  - DIARRHOEA [None]
